FAERS Safety Report 4318746-2 (Version None)
Quarter: 2004Q1

REPORT INFORMATION
  Report Type: 
  Country: None (occurrence: None)
  Receive Date: 20040315
  Receipt Date: 20040302
  Transmission Date: 20041129
  Serious: Yes (Other)
  Sender: FDA-Public Use
  Company Number: 2004202674US

PATIENT
  Age: 68 Year

DRUGS (2)
  1. HEPARIN SODIUM INJECTION [Suspect]
  2. WARFARIN SODIUM [Suspect]

REACTIONS (7)
  - CEREBROVASCULAR ACCIDENT [None]
  - CHOLECYSTITIS ACUTE [None]
  - HAEMODIALYSIS [None]
  - HEPATIC FUNCTION ABNORMAL [None]
  - INTRACARDIAC THROMBUS [None]
  - RENAL DISORDER [None]
  - RENAL IMPAIRMENT [None]
